FAERS Safety Report 18628806 (Version 3)
Quarter: 2021Q1

REPORT INFORMATION
  Report Type: Spontaneous
  Country: NL (occurrence: DK)
  Receive Date: 20201217
  Receipt Date: 20210211
  Transmission Date: 20210419
  Serious: Yes (Death, Hospitalization, Other)
  Sender: FDA-Public Use
  Company Number: DK-FRESENIUS KABI-FK202013252

PATIENT
  Age: 71 Year
  Sex: Male

DRUGS (3)
  1. PEMETREXED DISODIUM [Suspect]
     Active Substance: PEMETREXED DISODIUM
     Indication: NON-SMALL CELL LUNG CANCER
     Dosage: CYCLICAL
     Route: 065
  2. PEMBROLIZUMAB. [Suspect]
     Active Substance: PEMBROLIZUMAB
     Indication: NON-SMALL CELL LUNG CANCER
     Dosage: UNK?CYCLICAL
     Route: 065
  3. CARBOPLATIN (MANUFACTURER UNKNOWN) [Suspect]
     Active Substance: CARBOPLATIN
     Indication: NON-SMALL CELL LUNG CANCER
     Dosage: CYCLICAL
     Route: 065

REACTIONS (14)
  - Rash [Recovering/Resolving]
  - Malignant neoplasm progression [Unknown]
  - Hepatic function abnormal [Recovering/Resolving]
  - Exfoliative rash [Recovering/Resolving]
  - Skin toxicity [Unknown]
  - Neutropenia [Recovering/Resolving]
  - Dermatomyositis [Recovering/Resolving]
  - Dermatitis exfoliative [Recovering/Resolving]
  - Systemic lupus erythematosus [Recovering/Resolving]
  - Diarrhoea [Recovered/Resolved]
  - Eczema [Recovering/Resolving]
  - Sudden death [Fatal]
  - Lichen planus [Recovering/Resolving]
  - Nausea [Recovering/Resolving]
